FAERS Safety Report 20718001 (Version 19)
Quarter: 2024Q1

REPORT INFORMATION
  Report Type: Spontaneous
  Country: CA (occurrence: CA)
  Receive Date: 20220418
  Receipt Date: 20240306
  Transmission Date: 20240410
  Serious: Yes (Hospitalization, Other)
  Sender: FDA-Public Use
  Company Number: CA-CELLTRION INC.-2021CA017640

PATIENT

DRUGS (57)
  1. INFLECTRA [Suspect]
     Active Substance: INFLIXIMAB-DYYB
     Indication: Crohn^s disease
     Dosage: 500 MG EVERY 8 WEEKS
     Route: 042
     Dates: start: 20211019
  2. INFLECTRA [Suspect]
     Active Substance: INFLIXIMAB-DYYB
     Dosage: 500 MG EVERY 8 WEEKS
     Route: 042
     Dates: start: 20211214
  3. INFLECTRA [Suspect]
     Active Substance: INFLIXIMAB-DYYB
     Dosage: 500 MG EVERY 8 WEEKS
     Route: 042
     Dates: start: 20220208
  4. INFLECTRA [Suspect]
     Active Substance: INFLIXIMAB-DYYB
     Dosage: 500 MG EVERY 8 WEEKS
     Route: 042
     Dates: start: 20220405
  5. INFLECTRA [Suspect]
     Active Substance: INFLIXIMAB-DYYB
     Dosage: 500 MG EVERY 8 WEEKS
     Route: 042
     Dates: start: 20220531
  6. INFLECTRA [Suspect]
     Active Substance: INFLIXIMAB-DYYB
     Dosage: 500 MG EVERY 8 WEEKS
     Route: 042
     Dates: start: 20220804
  7. INFLECTRA [Suspect]
     Active Substance: INFLIXIMAB-DYYB
     Dosage: 500 MG EVERY 8 WEEKS
     Route: 042
     Dates: start: 20220927
  8. INFLECTRA [Suspect]
     Active Substance: INFLIXIMAB-DYYB
     Dosage: 500 MG EVERY 8 WEEKS
     Route: 042
     Dates: start: 20221122
  9. INFLECTRA [Suspect]
     Active Substance: INFLIXIMAB-DYYB
     Dosage: 500 MG EVERY 8 WEEKS
     Route: 042
     Dates: start: 20230116
  10. INFLECTRA [Suspect]
     Active Substance: INFLIXIMAB-DYYB
     Dosage: 500 MG EVERY 8 WEEKS
     Route: 042
     Dates: start: 20230411
  11. INFLECTRA [Suspect]
     Active Substance: INFLIXIMAB-DYYB
     Dosage: 500 MG EVERY 9 WEEKS
     Route: 042
     Dates: start: 20230619, end: 20230619
  12. INFLECTRA [Suspect]
     Active Substance: INFLIXIMAB-DYYB
     Dosage: 500 MG EVERY 8 WEEKS
     Route: 042
     Dates: start: 20230814
  13. INFLECTRA [Suspect]
     Active Substance: INFLIXIMAB-DYYB
     Dosage: 500 MG EVERY 8 WEEKS
     Route: 042
     Dates: start: 20231011, end: 20231011
  14. INFLECTRA [Suspect]
     Active Substance: INFLIXIMAB-DYYB
     Dosage: 500 MG EVERY 8 WEEKS
     Route: 042
     Dates: start: 20231205
  15. INFLECTRA [Suspect]
     Active Substance: INFLIXIMAB-DYYB
     Dosage: 500 MG EVERY 8 WEEKS(500 MG 11 WEEKS AND 6 DAYS)
     Route: 042
     Dates: start: 20240226
  16. ACETAMINOPHEN [Concomitant]
     Active Substance: ACETAMINOPHEN
     Indication: Premedication
     Dosage: 650 MG
     Route: 048
     Dates: start: 20211019, end: 20211019
  17. ACETAMINOPHEN [Concomitant]
     Active Substance: ACETAMINOPHEN
     Dosage: 650 MG
     Route: 048
     Dates: start: 20211214, end: 20211214
  18. ACETAMINOPHEN [Concomitant]
     Active Substance: ACETAMINOPHEN
     Dosage: 650 MG
     Route: 048
     Dates: start: 20220208, end: 20220208
  19. ACETAMINOPHEN [Concomitant]
     Active Substance: ACETAMINOPHEN
     Dosage: 650 MG
     Route: 048
     Dates: start: 20220405, end: 20220405
  20. ACETAMINOPHEN [Concomitant]
     Active Substance: ACETAMINOPHEN
     Dosage: 650 MG
     Route: 048
     Dates: start: 20220531, end: 20220531
  21. ACETAMINOPHEN [Concomitant]
     Active Substance: ACETAMINOPHEN
     Dosage: 650 MG
     Route: 048
     Dates: start: 20220804, end: 20220804
  22. ACETAMINOPHEN [Concomitant]
     Active Substance: ACETAMINOPHEN
     Dosage: 650 MG
     Route: 048
     Dates: start: 20220927, end: 20220927
  23. ACETAMINOPHEN [Concomitant]
     Active Substance: ACETAMINOPHEN
     Dosage: 650 MG
     Route: 048
     Dates: start: 20230116, end: 20230116
  24. ACETAMINOPHEN [Concomitant]
     Active Substance: ACETAMINOPHEN
     Dosage: 650 MG
     Route: 048
     Dates: start: 20230411, end: 20230411
  25. ACETAMINOPHEN [Concomitant]
     Active Substance: ACETAMINOPHEN
     Dosage: 650 MG
     Route: 048
     Dates: start: 20230619, end: 20230619
  26. ACETAMINOPHEN [Concomitant]
     Active Substance: ACETAMINOPHEN
     Dosage: 650 MG
     Route: 048
     Dates: start: 20230814, end: 20230814
  27. ACETAMINOPHEN [Concomitant]
     Active Substance: ACETAMINOPHEN
     Dosage: 650 MG
     Route: 048
     Dates: start: 20231011, end: 20231011
  28. ACETAMINOPHEN [Concomitant]
     Active Substance: ACETAMINOPHEN
     Dosage: 650 MG
     Route: 048
     Dates: start: 20231205, end: 20231205
  29. ACETAMINOPHEN [Concomitant]
     Active Substance: ACETAMINOPHEN
     Dosage: 650 MG
     Route: 048
     Dates: start: 20240226, end: 20240226
  30. AERIUS (DESLORATADINE) [Concomitant]
     Active Substance: DESLORATADINE
     Indication: Premedication
     Dosage: 5 MG
     Route: 048
     Dates: start: 20211019, end: 20211019
  31. AERIUS (DESLORATADINE) [Concomitant]
     Active Substance: DESLORATADINE
     Dosage: 5 MG
     Route: 048
     Dates: start: 20211214, end: 20211214
  32. AERIUS (DESLORATADINE) [Concomitant]
     Active Substance: DESLORATADINE
     Dosage: 5 MG
     Route: 048
     Dates: start: 20220208, end: 20220208
  33. AERIUS (DESLORATADINE) [Concomitant]
     Active Substance: DESLORATADINE
     Dosage: 5 MG
     Route: 048
     Dates: start: 20220405, end: 20220405
  34. AERIUS (DESLORATADINE) [Concomitant]
     Active Substance: DESLORATADINE
     Dosage: 5 MG
     Route: 048
     Dates: start: 20220531, end: 20220531
  35. AERIUS (DESLORATADINE) [Concomitant]
     Active Substance: DESLORATADINE
     Dosage: 5 MG
     Route: 048
     Dates: start: 20220804, end: 20220804
  36. AERIUS (DESLORATADINE) [Concomitant]
     Active Substance: DESLORATADINE
     Dosage: 5 MG
     Route: 048
     Dates: start: 20220927, end: 20220927
  37. AERIUS (DESLORATADINE) [Concomitant]
     Active Substance: DESLORATADINE
     Dosage: 5 MG
     Route: 048
     Dates: start: 20230116, end: 20230116
  38. AERIUS (DESLORATADINE) [Concomitant]
     Active Substance: DESLORATADINE
     Dosage: 5 MG
     Route: 048
     Dates: start: 20230411, end: 20230411
  39. AERIUS (DESLORATADINE) [Concomitant]
     Active Substance: DESLORATADINE
     Dosage: 5 MG
     Route: 048
     Dates: start: 20230619, end: 20230619
  40. AERIUS (DESLORATADINE) [Concomitant]
     Active Substance: DESLORATADINE
     Dosage: 5 MG
     Route: 048
     Dates: start: 20230814, end: 20230814
  41. AERIUS (DESLORATADINE) [Concomitant]
     Active Substance: DESLORATADINE
     Dosage: 5 MG
     Route: 048
     Dates: start: 20231011, end: 20231011
  42. AERIUS (DESLORATADINE) [Concomitant]
     Active Substance: DESLORATADINE
     Dosage: 5 MG
     Route: 048
     Dates: start: 20231205, end: 20231205
  43. AERIUS (DESLORATADINE) [Concomitant]
     Active Substance: DESLORATADINE
     Dosage: 5 MG
     Route: 048
     Dates: start: 20240226, end: 20240226
  44. DEXAMETHASONE [Concomitant]
     Active Substance: DEXAMETHASONE
     Indication: Premedication
     Dosage: 4 MG
     Route: 042
     Dates: start: 20240226, end: 20240226
  45. HYDROCORTISONE [Concomitant]
     Active Substance: HYDROCORTISONE
     Indication: Premedication
     Dosage: 100 MG
     Route: 042
     Dates: start: 20211019, end: 20211019
  46. HYDROCORTISONE [Concomitant]
     Active Substance: HYDROCORTISONE
     Dosage: 100 MG
     Route: 042
     Dates: start: 20211214, end: 20211214
  47. HYDROCORTISONE [Concomitant]
     Active Substance: HYDROCORTISONE
     Dosage: 100 MG
     Route: 042
     Dates: start: 20220208, end: 20220208
  48. HYDROCORTISONE [Concomitant]
     Active Substance: HYDROCORTISONE
     Dosage: 100 MG
     Route: 042
     Dates: start: 20220405, end: 20220405
  49. HYDROCORTISONE [Concomitant]
     Active Substance: HYDROCORTISONE
     Dosage: 100 MG
     Route: 042
     Dates: start: 20220531, end: 20220531
  50. HYDROCORTISONE [Concomitant]
     Active Substance: HYDROCORTISONE
     Dosage: 100 MG
     Route: 042
     Dates: start: 20220804, end: 20220804
  51. HYDROCORTISONE [Concomitant]
     Active Substance: HYDROCORTISONE
     Dosage: 100 MG
     Route: 042
     Dates: start: 20220927, end: 20220927
  52. HYDROCORTISONE [Concomitant]
     Active Substance: HYDROCORTISONE
     Dosage: 100 MG
     Route: 042
     Dates: start: 20230116, end: 20230116
  53. HYDROCORTISONE [Concomitant]
     Active Substance: HYDROCORTISONE
     Dosage: 100 MG
     Route: 042
     Dates: start: 20230411, end: 20230411
  54. HYDROCORTISONE [Concomitant]
     Active Substance: HYDROCORTISONE
     Dosage: 100 MG
     Route: 042
     Dates: start: 20230619, end: 20230619
  55. HYDROCORTISONE [Concomitant]
     Active Substance: HYDROCORTISONE
     Dosage: 100 MG
     Route: 042
     Dates: start: 20230814, end: 20230814
  56. HYDROCORTISONE [Concomitant]
     Active Substance: HYDROCORTISONE
     Dosage: 100 MG
     Route: 042
     Dates: start: 20231011, end: 20231011
  57. HYDROCORTISONE [Concomitant]
     Active Substance: HYDROCORTISONE
     Dosage: 100 MG
     Route: 042
     Dates: start: 20231205, end: 20231205

REACTIONS (25)
  - Cerebrovascular accident [Unknown]
  - Facial paralysis [Unknown]
  - Aphasia [Unknown]
  - Movement disorder [Unknown]
  - Grip strength decreased [Unknown]
  - Feeling abnormal [Unknown]
  - Bladder cancer [Unknown]
  - Blood pressure systolic increased [Not Recovered/Not Resolved]
  - Blood pressure fluctuation [Unknown]
  - Heart rate decreased [Not Recovered/Not Resolved]
  - Body temperature decreased [Not Recovered/Not Resolved]
  - Cough [Not Recovered/Not Resolved]
  - Nasal congestion [Unknown]
  - Dyspnoea exertional [Recovering/Resolving]
  - Fatigue [Recovering/Resolving]
  - Oxygen saturation decreased [Unknown]
  - Rales [Recovering/Resolving]
  - Blood pressure diastolic increased [Unknown]
  - Gait disturbance [Unknown]
  - Illness [Unknown]
  - Heart rate abnormal [Recovered/Resolved]
  - Blood pressure increased [Not Recovered/Not Resolved]
  - Off label use [Unknown]
  - Off label use [Unknown]
  - Intentional product use issue [Unknown]

NARRATIVE: CASE EVENT DATE: 20211019
